FAERS Safety Report 18706443 (Version 1)
Quarter: 2021Q1

REPORT INFORMATION
  Report Type: Spontaneous
  Country: US (occurrence: US)
  Receive Date: 20210106
  Receipt Date: 20210106
  Transmission Date: 20210419
  Serious: Yes (Hospitalization)
  Sender: FDA-Public Use
  Company Number: None

PATIENT
  Age: 12 Year
  Sex: Male
  Weight: 56.6 kg

DRUGS (6)
  1. ONCASPAR [Suspect]
     Active Substance: PEGASPARGASE
     Dates: end: 20201025
  2. VINCRISTINE SULFATE. [Suspect]
     Active Substance: VINCRISTINE SULFATE
     Dates: end: 20201111
  3. DAUNORUBICIN [Suspect]
     Active Substance: DAUNORUBICIN
     Dates: end: 20201111
  4. METHOTREXATE. [Suspect]
     Active Substance: METHOTREXATE
     Dates: end: 20201029
  5. PREDNISOLONE. [Suspect]
     Active Substance: PREDNISOLONE
     Dates: end: 20201112
  6. CYTARABINE (63878) [Suspect]
     Active Substance: CYTARABINE
     Dates: end: 20201020

REACTIONS (2)
  - Febrile neutropenia [None]
  - Palpitations [None]

NARRATIVE: CASE EVENT DATE: 20201113
